FAERS Safety Report 9967927 (Version 1)
Quarter: 2014Q1

REPORT INFORMATION
  Report Type: Report from Study
  Country: US (occurrence: US)
  Receive Date: 20140306
  Receipt Date: 20140306
  Transmission Date: 20141002
  Serious: No
  Sender: FDA-Public Use
  Company Number: US-ABBVIE-13P-163-1143729-00

PATIENT
  Age: 40 Year
  Sex: Male
  Weight: 88.53 kg

DRUGS (4)
  1. HUMIRA [Suspect]
     Indication: CROHN^S DISEASE
     Dates: start: 201305
  2. NORVASC [Concomitant]
     Indication: HYPERTENSION
  3. DEXILANT [Concomitant]
     Indication: GASTROOESOPHAGEAL REFLUX DISEASE
  4. APRISO [Concomitant]
     Indication: CROHN^S DISEASE

REACTIONS (1)
  - Abdominal pain [Recovered/Resolved]
